FAERS Safety Report 11401293 (Version 1)
Quarter: 2015Q3

REPORT INFORMATION
  Report Type: Spontaneous
  Country: CH (occurrence: CH)
  Receive Date: 20150820
  Receipt Date: 20150820
  Transmission Date: 20151125
  Serious: Yes (Other)
  Sender: FDA-Public Use
  Company Number: CH-BAXTER-2015BAX044559

PATIENT
  Sex: Female

DRUGS (15)
  1. ENDOXAN 1 G [Suspect]
     Active Substance: CYCLOPHOSPHAMIDE
     Indication: CHEMOTHERAPY
     Dosage: 4 TIMES
     Route: 065
  2. CAVITD3 [Concomitant]
     Indication: PRODUCT USED FOR UNKNOWN INDICATION
     Dosage: 500/400, 1-0-0
     Route: 065
  3. XGEVA [Concomitant]
     Active Substance: DENOSUMAB
     Indication: DRUG THERAPY
     Route: 058
     Dates: start: 201504
  4. ENDOXAN 1 G [Suspect]
     Active Substance: CYCLOPHOSPHAMIDE
     Indication: PALLIATIVE CARE
     Route: 065
     Dates: start: 201212, end: 201304
  5. EPIRUBICIN [Suspect]
     Active Substance: EPIRUBICIN
     Indication: CHEMOTHERAPY
     Dosage: 4 TIMES
     Route: 065
  6. TAMOXIFEN [Concomitant]
     Active Substance: TAMOXIFEN
     Indication: ADJUVANT THERAPY
     Route: 065
     Dates: start: 2001, end: 2006
  7. FEMARA [Suspect]
     Active Substance: LETROZOLE
     Indication: PALLIATIVE CARE
     Route: 065
     Dates: start: 201003
  8. CO-DIOVAN [Concomitant]
     Active Substance: HYDROCHLOROTHIAZIDE\VALSARTAN
     Indication: PRODUCT USED FOR UNKNOWN INDICATION
     Dosage: 160/12.5,1-0-0
     Route: 065
  9. TAMOXIFEN [Concomitant]
     Active Substance: TAMOXIFEN
     Indication: PALLIATIVE CARE
     Route: 065
     Dates: start: 201305, end: 201404
  10. AVASTIN [Suspect]
     Active Substance: BEVACIZUMAB
     Indication: IMMUNOGLOBULIN THERAPY
  11. FASLODEX [Suspect]
     Active Substance: FULVESTRANT
     Indication: PALLIATIVE CARE
     Route: 030
     Dates: start: 201111, end: 201209
  12. XELODA [Suspect]
     Active Substance: CAPECITABINE
     Indication: PALLIATIVE CARE
     Route: 048
     Dates: start: 201212, end: 201304
  13. XELODA [Suspect]
     Active Substance: CAPECITABINE
     Indication: IMMUNOGLOBULIN THERAPY
  14. AVASTIN [Suspect]
     Active Substance: BEVACIZUMAB
     Indication: PALLIATIVE CARE
     Route: 042
     Dates: start: 201212, end: 201304
  15. PARACETAMOL [Concomitant]
     Active Substance: ACETAMINOPHEN
     Indication: PRODUCT USED FOR UNKNOWN INDICATION

REACTIONS (6)
  - Malignant neoplasm progression [Not Recovered/Not Resolved]
  - Breast cancer metastatic [Unknown]
  - Toxicity to various agents [Unknown]
  - Systemic lupus erythematosus [Unknown]
  - Metastases to bone [Unknown]
  - Metastases to spine [Unknown]

NARRATIVE: CASE EVENT DATE: 2010
